FAERS Safety Report 24628955 (Version 3)
Quarter: 2025Q3

REPORT INFORMATION
  Report Type: Spontaneous
  Country: US (occurrence: US)
  Receive Date: 20241118
  Receipt Date: 20250810
  Transmission Date: 20251021
  Serious: No
  Sender: ALEXION PHARMACEUTICALS
  Company Number: US-AstraZeneca-CH-00749392AP

PATIENT
  Sex: Female

DRUGS (1)
  1. BYDUREON BCISE [Suspect]
     Active Substance: EXENATIDE
     Route: 065

REACTIONS (7)
  - Device delivery system issue [Unknown]
  - Incorrect dose administered by device [Unknown]
  - Product use issue [Unknown]
  - Blood glucose increased [Unknown]
  - Injection site mass [Unknown]
  - Memory impairment [Unknown]
  - Product dose omission issue [Unknown]
